FAERS Safety Report 8084426-3 (Version None)
Quarter: 2012Q1

REPORT INFORMATION
  Report Type: 
  Country: None (occurrence: None)
  Receive Date: 20120128
  Receipt Date: 20110315
  Transmission Date: 20120608
  Serious: No
  Sender: FDA-Public Use
  Company Number: US-ABBOTT-11P-163-0712034-00

PATIENT
  Sex: Female
  Weight: 124.85 kg

DRUGS (17)
  1. AYGESTIN [Concomitant]
     Indication: MENOPAUSE
  2. PROTONIX [Concomitant]
     Indication: GASTROOESOPHAGEAL REFLUX DISEASE
  3. VITAMIN B COMPLEX CAP [Concomitant]
     Indication: VITAMIN SUPPLEMENTATION
  4. POTASSIUM [Concomitant]
     Indication: MINERAL SUPPLEMENTATION
  5. HUMIRA [Suspect]
     Indication: RHEUMATOID ARTHRITIS
     Dates: start: 20070101
  6. TOPAMAX [Concomitant]
     Indication: MIGRAINE
  7. OMEGA 3 VITAMINS [Concomitant]
     Indication: VITAMIN SUPPLEMENTATION
  8. MORPHINE [Concomitant]
     Indication: PAIN
  9. NORCO [Concomitant]
     Indication: PAIN
  10. LASIX [Concomitant]
     Indication: HYPERTENSION
  11. VALIUM [Concomitant]
     Indication: ANXIETY
  12. MEDROL [Concomitant]
     Indication: PAIN
  13. ADVAIR DISKUS 100/50 [Concomitant]
     Indication: ASTHMA
  14. PROZAC [Concomitant]
     Indication: DEPRESSION
  15. FLEXERIL [Concomitant]
     Indication: MUSCLE RELAXANT THERAPY
  16. NEURONTIN [Concomitant]
     Indication: PAIN
  17. CALCIUM [Concomitant]
     Indication: MINERAL SUPPLEMENTATION

REACTIONS (3)
  - SINUSITIS [None]
  - ASTHMA [None]
  - HEADACHE [None]
